FAERS Safety Report 20546502 (Version 1)
Quarter: 2022Q1

REPORT INFORMATION
  Report Type: Spontaneous
  Country: IT (occurrence: IT)
  Receive Date: 20220303
  Receipt Date: 20220303
  Transmission Date: 20220424
  Serious: Yes (Other)
  Sender: FDA-Public Use
  Company Number: IT-PFM-2022-01148

PATIENT
  Age: 22 Year
  Sex: Female
  Weight: 56 kg

DRUGS (7)
  1. LORAZEPAM [Suspect]
     Active Substance: LORAZEPAM
     Indication: Product used for unknown indication
     Dosage: 1 UNK (1 TOTAL, SINGLE)
     Route: 048
     Dates: start: 20220207, end: 20220207
  2. VALPROIC ACID [Suspect]
     Active Substance: VALPROIC ACID
     Indication: Product used for unknown indication
     Dosage: 1 UNK (1 TOTAL, SINGLE)
     Route: 048
     Dates: start: 20220207, end: 20220207
  3. LITHIUM SULFATE [Suspect]
     Active Substance: LITHIUM SULFATE
     Indication: Product used for unknown indication
     Dosage: 1 UNK (1 TOTAL SINGLE)
     Route: 048
     Dates: start: 20220207, end: 20220207
  4. TOPAMAX [Suspect]
     Active Substance: TOPIRAMATE
     Indication: Product used for unknown indication
     Dosage: 1 UNK (1 TOTAL, SINGLE)
     Route: 048
     Dates: start: 20220207, end: 20220207
  5. TACHIPIRINA [Suspect]
     Active Substance: ACETAMINOPHEN
     Indication: Product used for unknown indication
     Dosage: 1 UNK (1 TOTAL, SINGLE)
     Route: 048
     Dates: start: 20220207, end: 20220207
  6. FERROUS SULFATE [Suspect]
     Active Substance: FERROUS SULFATE
     Indication: Product used for unknown indication
     Dosage: UNK, SINGLE
     Route: 048
     Dates: start: 20220207, end: 20220207
  7. VENLAFAXINE HYDROCHLORIDE [Suspect]
     Active Substance: VENLAFAXINE HYDROCHLORIDE
     Indication: Product used for unknown indication
     Dosage: 1 UNK (1 TOTAL, SINGLE)
     Route: 048
     Dates: start: 20220207, end: 20220207

REACTIONS (2)
  - Drug abuse [Unknown]
  - Injury [Unknown]

NARRATIVE: CASE EVENT DATE: 20220207
